FAERS Safety Report 4548667-1 (Version None)
Quarter: 2005Q1

REPORT INFORMATION
  Report Type: 
  Country: None (occurrence: None)
  Receive Date: 20050106
  Receipt Date: 20041228
  Transmission Date: 20050727
  Serious: No
  Sender: FDA-Public Use
  Company Number: 2004UW23036

PATIENT
  Sex: Female

DRUGS (4)
  1. NOLVADEX [Suspect]
     Indication: BREAST CANCER
  2. ATACAND [Concomitant]
  3. ASPIRIN [Concomitant]
  4. MULTIVITAMIN [Concomitant]

REACTIONS (5)
  - BLINDNESS UNILATERAL [None]
  - CATARACT [None]
  - EYE DISORDER [None]
  - HYPOTRICHOSIS [None]
  - NAIL DISORDER [None]
